FAERS Safety Report 4430703-4 (Version None)
Quarter: 2004Q3

REPORT INFORMATION
  Report Type: 
  Country: None (occurrence: None)
  Receive Date: 20040818
  Receipt Date: 20040806
  Transmission Date: 20050211
  Serious: Yes (Hospitalization, Other)
  Sender: FDA-Public Use
  Company Number: DK-2004-030057

PATIENT
  Age: 26 Year
  Sex: Female

DRUGS (1)
  1. YASMIN [Suspect]
     Indication: ORAL CONTRACEPTION
     Dosage: 1 TAB(S), ORAL
     Route: 048
     Dates: start: 20040201, end: 20040706

REACTIONS (3)
  - CHOLELITHIASIS [None]
  - DIABETES MELLITUS NON-INSULIN-DEPENDENT [None]
  - DYSPEPSIA [None]
